FAERS Safety Report 7548761-7 (Version None)
Quarter: 2011Q2

REPORT INFORMATION
  Report Type: 
  Country: None (occurrence: None)
  Receive Date: 20110615
  Receipt Date: 20110531
  Transmission Date: 20111010
  Serious: Yes (Hospitalization)
  Sender: FDA-Public Use
  Company Number: FR-ELI_LILLY_AND_COMPANY-FR201011005442

PATIENT
  Sex: Female

DRUGS (9)
  1. CHLORPROMAZINE HCL [Concomitant]
     Dosage: UNK
     Dates: start: 20101012
  2. ZYPREXA [Suspect]
     Dosage: 30 MG, QD
     Dates: start: 20101012
  3. CLONAZEPAM [Concomitant]
     Dosage: 2 MG, UNK
     Dates: start: 20100901
  4. TRIMEPRAZINE TARTRATE [Concomitant]
     Dosage: 30 MG, UNK
     Dates: start: 20100906
  5. IMOVANE [Concomitant]
  6. ZYPREXA [Suspect]
     Indication: MAJOR DEPRESSION
     Dates: end: 20100301
  7. ZYPREXA [Suspect]
     Dosage: 20 MG, DAILY (1/D)
     Route: 048
     Dates: start: 20100808
  8. ZYPREXA [Suspect]
     Dosage: 30 MG, DAILY (1/D)
     Route: 048
     Dates: start: 20101007
  9. CHLORPROMAZINE HCL [Concomitant]
     Indication: SCHIZOAFFECTIVE DISORDER
     Dosage: 75 MG, UNK
     Dates: start: 20100920

REACTIONS (2)
  - NEUTROPENIA [None]
  - OVERDOSE [None]
